FAERS Safety Report 24675611 (Version 2)
Quarter: 2024Q4

REPORT INFORMATION
  Report Type: Spontaneous
  Country: JP (occurrence: JP)
  Receive Date: 20241128
  Receipt Date: 20241219
  Transmission Date: 20250115
  Serious: Yes (Other)
  Sender: ABBVIE
  Company Number: JP-TAKEDA-2024TJP015256

PATIENT
  Age: 70 Year
  Sex: Male

DRUGS (2)
  1. LEUPLIN [Suspect]
     Active Substance: LEUPROLIDE ACETATE
     Indication: Prostate cancer
     Dosage: FORM STRENGTH: 22.5 MILLIGRAM, Q6MONTHS  PRO FOR INJECTION KIT 22.5 MG
     Route: 058
     Dates: start: 20240601
  2. VECTIBIX [Suspect]
     Active Substance: PANITUMUMAB
     Indication: Colon cancer
     Dosage: 6 MILLIGRAM/KILOGRAM, Q2WEEKS,
     Route: 041
     Dates: start: 20241001

REACTIONS (2)
  - Colon cancer [Unknown]
  - Dizziness [Recovered/Resolved]

NARRATIVE: CASE EVENT DATE: 20240101
